FAERS Safety Report 16709536 (Version 1)
Quarter: 2019Q3

REPORT INFORMATION
  Report Type: Report from Study
  Country: None (occurrence: CO)
  Receive Date: 20190816
  Receipt Date: 20190816
  Transmission Date: 20191004
  Serious: Yes (Hospitalization, Other)
  Sender: FDA-Public Use
  Company Number: CO-ABBVIE-19K-036-2891080-00

PATIENT
  Age: 46 Year
  Sex: Female
  Weight: 41 kg

DRUGS (2)
  1. HUMIRA [Suspect]
     Active Substance: ADALIMUMAB
     Indication: COLITIS ULCERATIVE
     Route: 058
     Dates: start: 20150110
  2. HUMIRA [Suspect]
     Active Substance: ADALIMUMAB
     Indication: COLITIS ULCERATIVE
     Route: 058
     Dates: end: 20190626

REACTIONS (6)
  - Haemoglobin decreased [Recovering/Resolving]
  - Colitis ulcerative [Recovered/Resolved]
  - Vomiting [Recovering/Resolving]
  - Colitis ulcerative [Recovering/Resolving]
  - Malnutrition [Recovering/Resolving]
  - Headache [Recovering/Resolving]

NARRATIVE: CASE EVENT DATE: 201907
